FAERS Safety Report 23448200 (Version 3)
Quarter: 2024Q2

REPORT INFORMATION
  Report Type: Report from Study
  Country: US (occurrence: US)
  Receive Date: 20240126
  Receipt Date: 20240423
  Transmission Date: 20240715
  Serious: Yes (Hospitalization, Other)
  Sender: FDA-Public Use
  Company Number: US-ABBVIE-5597806

PATIENT
  Age: 68 Year
  Sex: Male
  Weight: 95.254 kg

DRUGS (1)
  1. SKYRIZI [Suspect]
     Active Substance: RISANKIZUMAB-RZAA
     Indication: Psoriasis
     Route: 058

REACTIONS (2)
  - Coronary arterial stent insertion [Recovering/Resolving]
  - Dyschezia [Unknown]

NARRATIVE: CASE EVENT DATE: 20231223
